FAERS Safety Report 22629210 (Version 7)
Quarter: 2024Q1

REPORT INFORMATION
  Report Type: Report from Study
  Country: CA (occurrence: CA)
  Receive Date: 20230622
  Receipt Date: 20240212
  Transmission Date: 20240410
  Serious: Yes (Hospitalization, Other)
  Sender: FDA-Public Use
  Company Number: CA-OTSUKA-2022_049540

PATIENT
  Age: 58 Year
  Sex: Male

DRUGS (4)
  1. CEDAZURIDINE\DECITABINE [Suspect]
     Active Substance: CEDAZURIDINE\DECITABINE
     Indication: Chronic myelomonocytic leukaemia
     Dosage: UNK
     Route: 065
     Dates: start: 20220913
  2. CEDAZURIDINE\DECITABINE [Suspect]
     Active Substance: CEDAZURIDINE\DECITABINE
     Dosage: (35 MG DECITABINE AND 100 MG CEDAZURIDINE) 3PILLS/CYCLE
     Route: 065
     Dates: start: 202305
  3. CEDAZURIDINE\DECITABINE [Suspect]
     Active Substance: CEDAZURIDINE\DECITABINE
     Dosage: (35 MG DECITABINE AND 100 MG CEDAZURIDINE), QD (FOR 5 DAYS)QD (FOR 5 DAYS)UNK
     Route: 048
  4. CEDAZURIDINE\DECITABINE [Suspect]
     Active Substance: CEDAZURIDINE\DECITABINE
     Dosage: 1 DF (35 MG DECITABINE AND 100 MG CEDAZURIDINE), DAILY FOR 5 DAYS FROM DAYS 1 THROUGH 5 OF EACH 28-D
     Route: 048

REACTIONS (12)
  - Transfusion [Unknown]
  - Bone marrow transplant [Unknown]
  - Wound infection [Not Recovered/Not Resolved]
  - Myelosuppression [Unknown]
  - Anaemia [Unknown]
  - Malaise [Unknown]
  - Bedridden [Unknown]
  - Biopsy bone marrow [Unknown]
  - Weight decreased [Unknown]
  - Tooth infection [Unknown]
  - Asthenia [Unknown]
  - Decreased appetite [Unknown]

NARRATIVE: CASE EVENT DATE: 20231228
